FAERS Safety Report 13748920 (Version 1)
Quarter: 2017Q3

REPORT INFORMATION
  Report Type: Spontaneous
  Country: US (occurrence: US)
  Receive Date: 20170712
  Receipt Date: 20170712
  Transmission Date: 20171127
  Serious: Yes (Other)
  Sender: FDA-Public Use
  Company Number: None

PATIENT

DRUGS (1)
  1. BUPROPION XL TABLETS [Suspect]
     Active Substance: BUPROPION HYDROCHLORIDE
     Dosage: ?          OTHER DOSE:MG;?
     Route: 048
     Dates: start: 20170703, end: 20170712

REACTIONS (2)
  - Product quality issue [None]
  - Hallucination [None]

NARRATIVE: CASE EVENT DATE: 20170712
